FAERS Safety Report 5310828-1 (Version None)
Quarter: 2007Q2

REPORT INFORMATION
  Report Type: 
  Country: None (occurrence: None)
  Receive Date: 20070428
  Receipt Date: 20070420
  Transmission Date: 20071010
  Serious: Yes (Other)
  Sender: FDA-Public Use
  Company Number: US-PFIZER INC-2006124728

PATIENT
  Sex: Male

DRUGS (3)
  1. CELEBREX [Suspect]
     Indication: PAIN
     Route: 048
     Dates: start: 20000101, end: 20060101
  2. BEXTRA [Suspect]
     Indication: PAIN
     Route: 048
     Dates: start: 20000101, end: 20050401
  3. VIOXX [Suspect]
     Route: 048

REACTIONS (1)
  - ISCHAEMIC STROKE [None]
